FAERS Safety Report 10091707 (Version 2)
Quarter: 2014Q2

REPORT INFORMATION
  Report Type: Spontaneous
  Country: US (occurrence: US)
  Receive Date: 20140421
  Receipt Date: 20140421
  Transmission Date: 20141212
  Serious: No
  Sender: FDA-Public Use
  Company Number: US-GILEAD-2013-0067771

PATIENT
  Age: 68 Year
  Sex: Female

DRUGS (1)
  1. LETAIRIS [Suspect]
     Indication: PULMONARY ARTERIAL HYPERTENSION
     Dosage: 10 MG, QD
     Route: 048
     Dates: start: 20121016

REACTIONS (5)
  - Ear pain [Unknown]
  - Peripheral swelling [Unknown]
  - Sinusitis [Unknown]
  - Sinus headache [Unknown]
  - Nasal congestion [Unknown]
